FAERS Safety Report 7034019-1 (Version None)
Quarter: 2010Q4

REPORT INFORMATION
  Report Type: 
  Country: None (occurrence: None)
  Receive Date: 20101006
  Receipt Date: 20100927
  Transmission Date: 20110411
  Serious: Yes (Hospitalization)
  Sender: FDA-Public Use
  Company Number: LEO-2010-00891

PATIENT
  Age: 72 Year
  Sex: Male

DRUGS (7)
  1. INNOHEP [Suspect]
     Indication: DEEP VEIN THROMBOSIS
     Dosage: 14000 IU (14000 IU, 1 IN 1 D), SUBCUTANEOUS
     Route: 058
     Dates: start: 20100826, end: 20100830
  2. PREVISCAN (FLUINDIONE) [Suspect]
     Indication: DEEP VEIN THROMBOSIS
     Dosage: 1 DOSAGE FORMS, ORAL
     Route: 048
     Dates: start: 20100826, end: 20100903
  3. PREDNISOLONE [Concomitant]
  4. RABEPRAZOLE SODIUM [Concomitant]
  5. ART (DIACEREIN) [Concomitant]
  6. QVAR 40 [Concomitant]
  7. CACIT D3 (COLECALCIFEROL, CALCIUM CARBONATE) [Concomitant]

REACTIONS (3)
  - CONDITION AGGRAVATED [None]
  - HAEMATOMA [None]
  - RESPIRATORY DISORDER [None]
